FAERS Safety Report 5556785-4 (Version None)
Quarter: 2007Q4

REPORT INFORMATION
  Report Type: 
  Country: None (occurrence: None)
  Receive Date: 20071130
  Receipt Date: 20070808
  Transmission Date: 20080405
  Serious: No
  Sender: FDA-Public Use
  Company Number: 2007PV029664

PATIENT
  Age: 64 Year
  Sex: Male
  Weight: 124.7 kg

DRUGS (6)
  1. EXENATIDE(EXENATIDE) PEN,DISPOSABLE [Suspect]
     Indication: TYPE 2 DIABETES MELLITUS
     Dosage: 5 UG, 2/D, SUBCUTANEOUS, 10 UG, SUBCUTANEOUS
     Route: 058
     Dates: start: 20070110
  2. EXENATIDE(EXENATIDE) PEN,DISPOSABLE [Suspect]
  3. METFORMIN HCL [Concomitant]
  4. AVANDIA [Concomitant]
  5. LANTUS [Concomitant]
  6. CRYSTALOSE [Concomitant]

REACTIONS (5)
  - ABDOMINAL PAIN UPPER [None]
  - CONSTIPATION [None]
  - DYSPEPSIA [None]
  - ERUCTATION [None]
  - FAECES HARD [None]
